FAERS Safety Report 12306577 (Version 1)
Quarter: 2016Q2

REPORT INFORMATION
  Report Type: Spontaneous
  Country: US (occurrence: US)
  Receive Date: 20160426
  Receipt Date: 20160426
  Transmission Date: 20160815
  Serious: Yes (Congenital Anomaly, Other)
  Sender: FDA-Public Use
  Company Number: US-TEVA-653133USA

PATIENT
  Age: 49 Year
  Sex: Female
  Weight: 69.01 kg

DRUGS (3)
  1. KEVEYIS [Suspect]
     Active Substance: DICHLORPHENAMIDE
     Indication: FAMILIAL PERIODIC PARALYSIS
     Route: 065
     Dates: start: 20160219, end: 20160317
  2. DIAMOX SEQUELS [Suspect]
     Active Substance: ACETAZOLAMIDE
     Indication: FAMILIAL PERIODIC PARALYSIS
     Dosage: STOPPED AFTER ABOUT THREE WEEKS
     Dates: start: 20160129, end: 201602
  3. KEVEYIS [Suspect]
     Active Substance: DICHLORPHENAMIDE
     Route: 065
     Dates: start: 20160322

REACTIONS (6)
  - Familial periodic paralysis [Recovering/Resolving]
  - Feeling abnormal [Unknown]
  - Amenorrhoea [Unknown]
  - Product use issue [Unknown]
  - Adverse event [Unknown]
  - Wrong technique in product usage process [Unknown]

NARRATIVE: CASE EVENT DATE: 201601
